FAERS Safety Report 10207350 (Version 1)
Quarter: 2014Q2

REPORT INFORMATION
  Report Type: Spontaneous
  Country: US (occurrence: US)
  Receive Date: 20140530
  Receipt Date: 20140530
  Transmission Date: 20141212
  Serious: No
  Sender: FDA-Public Use
  Company Number: US-GLAXOSMITHKLINE-A1036167A

PATIENT
  Age: 71 Year
  Sex: Male

DRUGS (1)
  1. VENTOLIN [Suspect]
     Indication: DYSPNOEA
     Dosage: 90MCG UNKNOWN
     Route: 065
     Dates: start: 20120131

REACTIONS (1)
  - Drug administration error [Not Recovered/Not Resolved]
